FAERS Safety Report 5678766-2 (Version None)
Quarter: 2008Q1

REPORT INFORMATION
  Report Type: 
  Country: None (occurrence: None)
  Receive Date: 20080320
  Receipt Date: 20080307
  Transmission Date: 20080703
  Serious: Yes (Death)
  Sender: FDA-Public Use
  Company Number: SPV1-2008-00519

PATIENT
  Age: 37 Year
  Sex: Female

DRUGS (4)
  1. AGRYLIN [Suspect]
     Indication: ESSENTIAL THROMBOCYTHAEMIA
     Dosage: 1 MG, 2X/DAY:BID, ORAL; 1.5 MG, 2X/DAY:BID, ORAL; 1 MG, 2X/DAY:BID, ORAL
     Route: 048
     Dates: start: 20070305, end: 20070503
  2. AGRYLIN [Suspect]
     Indication: ESSENTIAL THROMBOCYTHAEMIA
     Dosage: 1 MG, 2X/DAY:BID, ORAL; 1.5 MG, 2X/DAY:BID, ORAL; 1 MG, 2X/DAY:BID, ORAL
     Route: 048
     Dates: start: 20070504, end: 20070710
  3. AGRYLIN [Suspect]
     Indication: ESSENTIAL THROMBOCYTHAEMIA
     Dosage: 1 MG, 2X/DAY:BID, ORAL; 1.5 MG, 2X/DAY:BID, ORAL; 1 MG, 2X/DAY:BID, ORAL
     Route: 048
     Dates: start: 20070711, end: 20080206
  4. ASTRIX (ACETYLSALICYLIC ACID) [Concomitant]

REACTIONS (2)
  - HAEMORRHAGE INTRACRANIAL [None]
  - INTRAVENTRICULAR HAEMORRHAGE [None]
